FAERS Safety Report 5774125-2 (Version None)
Quarter: 2008Q2

REPORT INFORMATION
  Report Type: 
  Country: None (occurrence: None)
  Receive Date: 20080616
  Receipt Date: 20080611
  Transmission Date: 20081010
  Serious: Yes (Life-Threatening)
  Sender: FDA-Public Use
  Company Number: US-ASTRAZENECA-2007AC01491

PATIENT
  Age: 54 Year
  Sex: Male

DRUGS (5)
  1. LISINOPRIL [Suspect]
     Indication: HYPERTENSION
  2. AMLODIPINE [Concomitant]
     Indication: HYPERTENSION
  3. SPIRONOLACTONE [Concomitant]
     Indication: FLUID RETENTION
  4. FUROSEMIDE [Concomitant]
     Indication: FLUID RETENTION
  5. LACTULOSE [Concomitant]

REACTIONS (2)
  - HYPOTENSION [None]
  - LEUCINE AMINOPEPTIDASE DECREASED [None]
